FAERS Safety Report 16088395 (Version 3)
Quarter: 2019Q4

REPORT INFORMATION
  Report Type: Report from Study
  Country: US (occurrence: US)
  Receive Date: 20190319
  Receipt Date: 20191211
  Transmission Date: 20200122
  Serious: Yes (Hospitalization)
  Sender: FDA-Public Use
  Company Number: US-EISAI MEDICAL RESEARCH-EC-2018-045602

PATIENT
  Age: 63 Year
  Sex: Female
  Weight: 87 kg

DRUGS (19)
  1. LENVIMA [Suspect]
     Active Substance: LENVATINIB
     Route: 048
     Dates: start: 201810, end: 201811
  2. LENVIMA [Suspect]
     Active Substance: LENVATINIB
     Route: 048
     Dates: start: 201812, end: 20190106
  3. PREDNISONE PAK [Concomitant]
  4. LOSARTAN. [Concomitant]
     Active Substance: LOSARTAN
  5. AFINITOR [Concomitant]
     Active Substance: EVEROLIMUS
  6. POTASSIUM [Concomitant]
     Active Substance: POTASSIUM
  7. LENVIMA [Suspect]
     Active Substance: LENVATINIB
     Route: 048
     Dates: start: 2018, end: 201810
  8. LENVIMA [Suspect]
     Active Substance: LENVATINIB
     Dosage: ONE TABLET EVERY OTHER WEEK
     Route: 048
     Dates: start: 2019
  9. DHEA [Concomitant]
     Active Substance: PRASTERONE
  10. CALCIUM+D [Concomitant]
     Active Substance: CALCIUM\VITAMIN D
  11. SERTRALINE [Concomitant]
     Active Substance: SERTRALINE HYDROCHLORIDE
  12. LENVIMA [Suspect]
     Active Substance: LENVATINIB
     Indication: RENAL CANCER
     Route: 048
     Dates: start: 20180906, end: 2018
  13. CLONIDINE. [Concomitant]
     Active Substance: CLONIDINE
  14. LENVIMA [Suspect]
     Active Substance: LENVATINIB
     Route: 048
     Dates: start: 20190111, end: 2019
  15. SYNTHROID [Concomitant]
     Active Substance: LEVOTHYROXINE SODIUM
  16. IRON [Concomitant]
     Active Substance: IRON
  17. AREDS [Concomitant]
     Active Substance: MINERALS\VITAMINS
  18. FLUDROCORTISONE ACETATE. [Concomitant]
     Active Substance: FLUDROCORTISONE ACETATE
  19. TOPIRAMATE. [Concomitant]
     Active Substance: TOPIRAMATE

REACTIONS (22)
  - Blood pressure increased [Not Recovered/Not Resolved]
  - Hypoaesthesia [Unknown]
  - Headache [Unknown]
  - Weight decreased [Unknown]
  - Heart rate irregular [Recovering/Resolving]
  - Oral pain [Unknown]
  - Taste disorder [Unknown]
  - Influenza [Unknown]
  - Cognitive disorder [Unknown]
  - Diarrhoea [Unknown]
  - Fatigue [Recovering/Resolving]
  - Asthenia [Recovering/Resolving]
  - Electrolyte imbalance [Unknown]
  - Dehydration [Unknown]
  - Bacterial sepsis [Unknown]
  - Nausea [Unknown]
  - Gastric disorder [Not Recovered/Not Resolved]
  - Vomiting [Unknown]
  - Blood potassium decreased [Recovering/Resolving]
  - Abdominal pain upper [Recovering/Resolving]
  - Malaise [Unknown]
  - Feeding disorder [Unknown]

NARRATIVE: CASE EVENT DATE: 2018
